FAERS Safety Report 5378665-X (Version None)
Quarter: 2007Q3

REPORT INFORMATION
  Report Type: 
  Country: None (occurrence: None)
  Receive Date: 20070702
  Receipt Date: 20070702
  Transmission Date: 20080115
  Serious: Yes (Life-Threatening)
  Sender: FDA-Public Use
  Company Number: None

PATIENT
  Sex: Male
  Weight: 102.0593 kg

DRUGS (2)
  1. ALEVE [Suspect]
     Indication: MUSCLE SPASMS
     Dosage: 2 TABLET DAILY PO
     Route: 048
     Dates: start: 20070322, end: 20070331
  2. ALEVE [Suspect]

REACTIONS (4)
  - HAEMATOCHEZIA [None]
  - HAEMORRHAGE [None]
  - POLYP [None]
  - ULCER [None]
